FAERS Safety Report 7083857-8 (Version None)
Quarter: 2010Q4

REPORT INFORMATION
  Report Type: 
  Country: None (occurrence: None)
  Receive Date: 20101104
  Receipt Date: 20101022
  Transmission Date: 20110411
  Serious: Yes (Hospitalization)
  Sender: FDA-Public Use
  Company Number: US-BAYER-201022851BCC

PATIENT
  Age: 71 Year
  Sex: Female
  Weight: 77 kg

DRUGS (8)
  1. ASPIRIN [Suspect]
     Indication: THROMBOSIS PROPHYLAXIS
     Dosage: TOTAL DAILY DOSE: 81 MG  UNIT DOSE: 81 MG
     Route: 048
     Dates: start: 20010610
  2. TANEZUMAB VS PLACEBO [Suspect]
     Indication: OSTEOARTHRITIS
     Dosage: ONCE EVERY 8 WEEKS
     Route: 058
     Dates: start: 20091222, end: 20100609
  3. MOBIC [Suspect]
     Indication: OSTEOARTHRITIS
     Route: 048
     Dates: start: 20100414
  4. ULTRAM [Concomitant]
     Indication: PAIN
     Dates: start: 20081220
  5. PRILOSEC [Concomitant]
     Indication: GASTROOESOPHAGEAL REFLUX DISEASE
     Dates: start: 20090110
  6. MAGNESIUM [Concomitant]
     Indication: MUSCLE SPASMS
     Dates: start: 20081220
  7. PRIVINIL [Concomitant]
     Indication: HYPERTENSION
     Dosage: 10-12.5MG
     Dates: start: 19900715
  8. CELEXA [Concomitant]
     Indication: DEPRESSION
     Dates: start: 20090110

REACTIONS (2)
  - ANAEMIA [None]
  - GASTROINTESTINAL HAEMORRHAGE [None]
